FAERS Safety Report 10907548 (Version 1)
Quarter: 2015Q1

REPORT INFORMATION
  Report Type: Spontaneous
  Country: US (occurrence: US)
  Receive Date: 20150312
  Receipt Date: 20150312
  Transmission Date: 20150721
  Serious: No
  Sender: FDA-Public Use
  Company Number: US-PFIZER INC-2015085365

PATIENT
  Age: 47 Year
  Sex: Female

DRUGS (14)
  1. CEVIMELINE [Concomitant]
     Active Substance: CEVIMELINE
  2. METHOTREXATE [Concomitant]
     Active Substance: METHOTREXATE
  3. DICLOFENAC [Concomitant]
     Active Substance: DICLOFENAC
  4. FOLIC ACID. [Concomitant]
     Active Substance: FOLIC ACID
  5. ARMOUR THYROID [Concomitant]
     Active Substance: THYROID, PORCINE\THYROID, UNSPECIFIED
  6. MISOPROSTOL. [Concomitant]
     Active Substance: MISOPROSTOL
  7. VITAMIN D [Concomitant]
     Active Substance: CHOLECALCIFEROL
  8. LINZESS [Concomitant]
     Active Substance: LINACLOTIDE
     Dosage: UNK
  9. CALCIUM [Concomitant]
     Active Substance: CALCIUM
  10. ATORVASTATIN [Concomitant]
     Active Substance: ATORVASTATIN
  11. TRAMADOL [Concomitant]
     Active Substance: TRAMADOL
  12. PREDNISONE. [Concomitant]
     Active Substance: PREDNISONE
  13. OMEPRAZOLE. [Concomitant]
     Active Substance: OMEPRAZOLE
  14. XELJANZ [Suspect]
     Active Substance: TOFACITINIB CITRATE
     Indication: RHEUMATOID ARTHRITIS
     Dosage: 5 MG, 2X/DAY
     Route: 048
     Dates: start: 201405, end: 201502

REACTIONS (1)
  - Drug ineffective [Unknown]
